FAERS Safety Report 10332134 (Version 1)
Quarter: 2014Q3

REPORT INFORMATION
  Report Type: Spontaneous
  Country: US (occurrence: None)
  Receive Date: 20140721
  Receipt Date: 20140721
  Transmission Date: 20150326
  Serious: No
  Sender: FDA-Public Use
  Company Number: None

PATIENT
  Age: 69 Year
  Sex: Female
  Weight: 80.29 kg

DRUGS (4)
  1. KROGER SLEEP AID [Concomitant]
  2. LIGHTER CANE [Concomitant]
  3. SULFATRIM [Suspect]
     Active Substance: SULFAMETHOXAZOLE\TRIMETHOPRIM
     Indication: GASTROINTESTINAL INFECTION
     Dosage: 1 TAB 2 TIMES A DAY FOR 7 DAYS
     Dates: start: 20140214, end: 20140709
  4. SUN VIT [Concomitant]

REACTIONS (6)
  - Oral infection [None]
  - Tonsillar disorder [None]
  - Stomatitis [None]
  - Lip infection [None]
  - Infective glossitis [None]
  - Erythema [None]

NARRATIVE: CASE EVENT DATE: 20140709
